FAERS Safety Report 16115893 (Version 1)
Quarter: 2019Q1

REPORT INFORMATION
  Report Type: Spontaneous
  Country: GR (occurrence: GR)
  Receive Date: 20190326
  Receipt Date: 20190326
  Transmission Date: 20190418
  Serious: Yes (Death, Hospitalization, Other)
  Sender: FDA-Public Use
  Company Number: GR-AUROBINDO-AUR-APL-2019-015436

PATIENT

DRUGS (2)
  1. AMIKACIN. [Suspect]
     Active Substance: AMIKACIN
     Indication: PASTEURELLA INFECTION
     Dosage: 1 GRAM
     Route: 065
  2. PIPERACILLIN AND TAZOBACTAM [Suspect]
     Active Substance: PIPERACILLIN SODIUM\TAZOBACTAM SODIUM
     Indication: PASTEURELLA INFECTION
     Dosage: 13.5 GRAM, DAILY (4.5 G, TID)
     Route: 042

REACTIONS (2)
  - Pasteurella infection [Fatal]
  - Condition aggravated [Fatal]
